FAERS Safety Report 12989800 (Version 1)
Quarter: 2016Q4

REPORT INFORMATION
  Report Type: Spontaneous
  Country: AU (occurrence: AU)
  Receive Date: 20161201
  Receipt Date: 20161201
  Transmission Date: 20170207
  Serious: Yes (Other)
  Sender: FDA-Public Use
  Company Number: AU-JNJFOC-20161121282

PATIENT
  Age: 2 Decade
  Sex: Male

DRUGS (1)
  1. VISINE EYE ADVANCED [Suspect]
     Active Substance: TETRAHYDROZOLINE HYDROCHLORIDE
     Indication: PRODUCT USED FOR UNKNOWN INDICATION
     Dosage: PUT 2 DROPS IN EACH EYE
     Route: 047
     Dates: start: 20161117, end: 20161117

REACTIONS (4)
  - Blindness [Recovering/Resolving]
  - Photophobia [Not Recovered/Not Resolved]
  - Lacrimation increased [Not Recovered/Not Resolved]
  - Strabismus [Not Recovered/Not Resolved]

NARRATIVE: CASE EVENT DATE: 20161118
